FAERS Safety Report 14370785 (Version 3)
Quarter: 2018Q2

REPORT INFORMATION
  Report Type: Spontaneous
  Country: US (occurrence: US)
  Receive Date: 20180110
  Receipt Date: 20180504
  Transmission Date: 20180711
  Serious: No
  Sender: FDA-Public Use
  Company Number: US-PFIZER INC-2018007163

PATIENT
  Age: 72 Year
  Sex: Female

DRUGS (16)
  1. FLUOXETINE [Concomitant]
     Active Substance: FLUOXETINE HYDROCHLORIDE
     Dosage: 40 MG, 1X/DAY
  2. ROSUVASTATIN CALCIUM GENERIC [Concomitant]
     Active Substance: ROSUVASTATIN CALCIUM
     Dosage: 10 MG, 1X/DAY
  3. FUROSEMIDE. [Concomitant]
     Active Substance: FUROSEMIDE
     Dosage: 40 MG, 2X/DAY (17+Y)
  4. LOSARTAN. [Concomitant]
     Active Substance: LOSARTAN
     Dosage: 5 MG, 1X/DAY (6 YEARS AGO)
  5. URSODIOL. [Concomitant]
     Active Substance: URSODIOL
     Dosage: 600 MG, 2X/DAY (300 MG 2X2 DAILY)
  6. ADVAIR HFA [Concomitant]
     Active Substance: FLUTICASONE PROPIONATE\SALMETEROL XINAFOATE
     Dosage: 100/50, AS NEEDED
  7. ALBUTEROL SULFATE AND IPRATROPIUM BROMIDE [Concomitant]
     Active Substance: ALBUTEROL SULFATE\IPRATROPIUM BROMIDE
     Dosage: 0.5 MG/3 MG INHALED BY MACHINE
  8. MOMETASONE FUROATE CIPLA [Concomitant]
     Dosage: NK, AS NEEDED (0.190)
     Route: 061
  9. CLOPIDOGREL BISULFATE. [Concomitant]
     Active Substance: CLOPIDOGREL BISULFATE
     Dosage: 75 MG, DAILY
  10. MUPIROCIN. [Concomitant]
     Active Substance: MUPIROCIN
     Dosage: UNK, AS NEEDED (290)
  11. NEURONTIN [Suspect]
     Active Substance: GABAPENTIN
     Indication: FIBROMYALGIA
     Dosage: 600 MG, 2X/DAY
     Dates: start: 1995
  12. OXYCODONE [Concomitant]
     Active Substance: OXYCODONE
     Dosage: 30 MG, AS NEEDED (6 HRS)
  13. PANTOPRAZOLE [Concomitant]
     Active Substance: PANTOPRAZOLE
     Dosage: 40 MG, 1X/DAY
  14. ROPINIROLE. [Concomitant]
     Active Substance: ROPINIROLE
     Dosage: 2 MG, 2X/DAY
  15. METOPROLOL. [Concomitant]
     Active Substance: METOPROLOL
     Dosage: 50 MG, 2X/DAY
  16. BABY ASPIRIN [Concomitant]
     Active Substance: ASPIRIN
     Dosage: UNK, 1X/DAY

REACTIONS (2)
  - Feeling abnormal [Unknown]
  - Drug ineffective [Unknown]
